FAERS Safety Report 21227408 (Version 1)
Quarter: 2022Q3

REPORT INFORMATION
  Report Type: Spontaneous
  Country: US (occurrence: US)
  Receive Date: 20220818
  Receipt Date: 20220818
  Transmission Date: 20221027
  Serious: No
  Sender: FDA-Public Use
  Company Number: US-GSK-US2022AMR110596

PATIENT
  Sex: Female

DRUGS (2)
  1. NUCALA [Suspect]
     Active Substance: MEPOLIZUMAB
     Indication: Product used for unknown indication
     Dosage: 300 MG, 100MG/ML
  2. NUCALA [Suspect]
     Active Substance: MEPOLIZUMAB
     Dosage: 200 MG

REACTIONS (3)
  - Underdose [Unknown]
  - Product dose omission issue [Unknown]
  - Product complaint [Unknown]
